FAERS Safety Report 24084969 (Version 1)
Quarter: 2024Q3

REPORT INFORMATION
  Report Type: Spontaneous
  Country: IT (occurrence: IT)
  Receive Date: 20240712
  Receipt Date: 20240712
  Transmission Date: 20241017
  Serious: No
  Sender: PIERRE FABRE MEDICAMENT
  Company Number: IT-PFM-2021-12273

PATIENT
  Age: 1 Year
  Sex: Female

DRUGS (3)
  1. PROPRANOLOL [Suspect]
     Active Substance: PROPRANOLOL HYDROCHLORIDE
     Indication: Fallot^s tetralogy
     Dosage: UNK
     Route: 048
  2. PROPRANOLOL [Suspect]
     Active Substance: PROPRANOLOL HYDROCHLORIDE
     Indication: Off label use
  3. MORPHINE [Suspect]
     Active Substance: MORPHINE
     Indication: Fallot^s tetralogy
     Dosage: 0.2 MG/KG, UNK
     Route: 058

REACTIONS (3)
  - Product use in unapproved indication [Unknown]
  - Off label use [Unknown]
  - Product administered to patient of inappropriate age [Unknown]
